FAERS Safety Report 17656939 (Version 2)
Quarter: 2020Q2

REPORT INFORMATION
  Report Type: Report from Study
  Country: FR (occurrence: FR)
  Receive Date: 20200410
  Receipt Date: 20200421
  Transmission Date: 20200713
  Serious: Yes (Hospitalization)
  Sender: FDA-Public Use
  Company Number: FR-AMGEN-FRACT2020058420

PATIENT
  Age: 72 Year
  Sex: Male
  Weight: 68 kg

DRUGS (26)
  1. DOXYCYCLIN [DOXYCYCLINE] [Concomitant]
     Active Substance: DOXYCYCLINE
  2. DEXERYL [CHLORPHENAMINE MALEATE;DEXTROMETHORPHAN HYDROBROMIDE;GUAIFENE [Concomitant]
  3. OXALIPLATIN. [Suspect]
     Active Substance: OXALIPLATIN
     Dosage: 150 MILLIGRAM
     Route: 042
  4. IRINOTECAN [Suspect]
     Active Substance: IRINOTECAN
     Indication: COLORECTAL CANCER
     Dosage: UNK
     Route: 042
     Dates: start: 20200212
  5. XARELTO [Concomitant]
     Active Substance: RIVAROXABAN
     Dosage: 20 MILLIGRAM, QD
  6. SETOFILM [Concomitant]
     Active Substance: ONDANSETRON
  7. LEVOFOLINATE [LEVOFOLINIC ACID] [Suspect]
     Active Substance: LEVOLEUCOVORIN
     Dosage: 400 MILLIGRAM
     Route: 042
  8. LEVOFOLINATE [LEVOFOLINIC ACID] [Suspect]
     Active Substance: LEVOLEUCOVORIN
     Indication: COLORECTAL CANCER
     Dosage: UNK
     Route: 042
     Dates: start: 20200212
  9. EMEND [Concomitant]
     Active Substance: APREPITANT
     Dosage: UNK
  10. DIFFU-K [Concomitant]
     Active Substance: POTASSIUM CHLORIDE
  11. OXALIPLATIN. [Suspect]
     Active Substance: OXALIPLATIN
     Indication: COLORECTAL CANCER
     Dosage: UNK
     Route: 042
     Dates: start: 20200212
  12. ABASAGLAR [Concomitant]
     Active Substance: INSULIN GLARGINE
     Dosage: 14 UNIT, QD
     Route: 048
  13. PRIMPERAN [Concomitant]
     Active Substance: METOCLOPRAMIDE HYDROCHLORIDE
  14. TIORFAN [Concomitant]
     Active Substance: RACECADOTRIL
     Dosage: UNK UNK, AS NECESSARY
  15. PANITUMUMAB [Suspect]
     Active Substance: PANITUMUMAB
     Indication: COLORECTAL CANCER
     Dosage: UNK
     Route: 042
     Dates: start: 20200212
  16. PANTOPRAZOLE [Concomitant]
     Active Substance: PANTOPRAZOLE
     Dosage: 40 MILLIGRAM, QD
     Route: 048
  17. DOLIPRANE [Concomitant]
     Active Substance: ACETAMINOPHEN
     Indication: PAIN
  18. SMECTA [Concomitant]
     Active Substance: MONTMORILLONITE
     Dosage: UNK UNK, AS NECESSARY
  19. BINOCRIT [Concomitant]
     Active Substance: ERYTHROPOIETIN
     Dosage: 40 UNIT, QWK FOR 4 WEEKS
  20. MAGNESIUM [Concomitant]
     Active Substance: MAGNESIUM
  21. PANITUMUMAB [Suspect]
     Active Substance: PANITUMUMAB
     Dosage: 520 MILLIGRAM
     Route: 042
  22. IRINOTECAN [Suspect]
     Active Substance: IRINOTECAN
     Dosage: 260 MILLIGRAM
     Route: 042
  23. ALPRAZOLAM. [Concomitant]
     Active Substance: ALPRAZOLAM
     Dosage: 0.25 MILLIGRAM, QD
     Route: 048
  24. IMODIUM [Concomitant]
     Active Substance: LOPERAMIDE HYDROCHLORIDE
     Dosage: UNK UNK, AS NECESSARY
  25. ZARZIO [Concomitant]
     Active Substance: FILGRASTIM
     Dosage: FOR 5 DAYS FROM D5
  26. SODIUM BICARBONATE. [Concomitant]
     Active Substance: SODIUM BICARBONATE
     Route: 048

REACTIONS (1)
  - Neuropathy peripheral [Recovered/Resolved]

NARRATIVE: CASE EVENT DATE: 20200401
